FAERS Safety Report 8422427-3 (Version None)
Quarter: 2012Q2

REPORT INFORMATION
  Report Type: 
  Country: None (occurrence: None)
  Receive Date: 20120608
  Receipt Date: 20120601
  Transmission Date: 20120825
  Serious: No
  Sender: FDA-Public Use
  Company Number: VE-PFIZER INC-2012124467

PATIENT
  Age: 62 Year
  Sex: Female

DRUGS (4)
  1. ASCORBIC ACID [Concomitant]
     Dosage: UNK
  2. DAFLON [Concomitant]
     Dosage: UNK
  3. LIPITOR [Suspect]
     Indication: HYPERCHOLESTEROLAEMIA
     Dosage: 20 MG, 1X/DAY
     Route: 048
  4. DOXIUM [Concomitant]
     Dosage: UNK

REACTIONS (1)
  - RASH GENERALISED [None]
